FAERS Safety Report 20066224 (Version 1)
Quarter: 2021Q4

REPORT INFORMATION
  Report Type: Spontaneous
  Country: JP (occurrence: JP)
  Receive Date: 20211114
  Receipt Date: 20211114
  Transmission Date: 20220303
  Serious: Yes (Other)
  Sender: FDA-Public Use
  Company Number: JP-SA-2021SA349172

PATIENT
  Age: 50 Year
  Sex: Male
  Weight: 60 kg

DRUGS (3)
  1. FABRAZYME [Suspect]
     Active Substance: AGALSIDASE BETA
     Indication: Fabry^s disease
     Dosage: DAILY DOSE: 35 MG
     Route: 041
     Dates: start: 201510
  2. FABRAZYME [Suspect]
     Active Substance: AGALSIDASE BETA
     Indication: Fabry^s disease
     Dosage: DAILY DOSE: 25 MG
     Route: 041
     Dates: start: 201510
  3. CLOPIDOGREL BISULFATE [Concomitant]
     Active Substance: CLOPIDOGREL BISULFATE
     Indication: Product used for unknown indication
     Dosage: 75 MG/DAY
     Route: 065

REACTIONS (3)
  - Cerebral infarction [Unknown]
  - Muscular weakness [Recovering/Resolving]
  - Chest pain [Recovered/Resolved]

NARRATIVE: CASE EVENT DATE: 20210101
